FAERS Safety Report 6305955-6 (Version None)
Quarter: 2009Q3

REPORT INFORMATION
  Report Type: 
  Country: None (occurrence: None)
  Receive Date: 20090812
  Receipt Date: 20090804
  Transmission Date: 20100115
  Serious: Yes (Other)
  Sender: FDA-Public Use
  Company Number: US-CELGENEUS-163-20785-09080294

PATIENT
  Sex: Female

DRUGS (3)
  1. THALOMID [Suspect]
     Indication: MULTIPLE MYELOMA
     Route: 048
     Dates: start: 20081201
  2. THALOMID [Suspect]
     Dosage: 200-100MG
     Route: 048
     Dates: start: 20070301
  3. THALOMID [Suspect]
     Route: 048
     Dates: start: 20081001

REACTIONS (4)
  - INFECTION [None]
  - MUSCLE SPASMS [None]
  - OSTEOPOROSIS [None]
  - PAIN [None]
